FAERS Safety Report 22171102 (Version 1)
Quarter: 2023Q2

REPORT INFORMATION
  Report Type: Report from Study
  Country: JP (occurrence: JP)
  Receive Date: 20230404
  Receipt Date: 20230404
  Transmission Date: 20230721
  Serious: Yes (Hospitalization, Other)
  Sender: FDA-Public Use
  Company Number: JP-INSMED-2022-02475-JPAA

PATIENT
  Sex: Female

DRUGS (2)
  1. ARIKAYCE [Suspect]
     Active Substance: AMIKACIN
     Indication: Mycobacterium avium complex infection
     Dosage: 590 MILLIGRAM, QD
     Route: 055
     Dates: start: 202208, end: 20220905
  2. ARIKAYCE [Suspect]
     Active Substance: AMIKACIN
     Dosage: UNK UNK, QOD
     Route: 055
     Dates: start: 20220923, end: 20230209

REACTIONS (8)
  - Hospitalisation [Unknown]
  - Mycobacterium avium complex infection [Unknown]
  - Limb injury [Unknown]
  - Oropharyngeal discomfort [Unknown]
  - Dysphonia [Recovering/Resolving]
  - Device issue [Unknown]
  - Off label use [Unknown]
  - Drug ineffective [Unknown]

NARRATIVE: CASE EVENT DATE: 20220101
